FAERS Safety Report 6876655-9 (Version None)
Quarter: 2010Q3

REPORT INFORMATION
  Report Type: 
  Country: None (occurrence: None)
  Receive Date: 20100727
  Receipt Date: 20100714
  Transmission Date: 20110219
  Serious: Yes (Other)
  Sender: FDA-Public Use
  Company Number: JP-PFIZER INC-2010078071

PATIENT
  Sex: Female

DRUGS (2)
  1. AROMASIN [Suspect]
     Indication: BREAST CANCER RECURRENT
     Dosage: UNK
     Route: 048
     Dates: start: 20050224
  2. DIAZEPAM [Concomitant]
     Indication: MUSCLE TIGHTNESS
     Dosage: 2 MG, 3X/DAY
     Route: 048
     Dates: start: 20051001, end: 20060831

REACTIONS (1)
  - INTERSTITIAL LUNG DISEASE [None]
